FAERS Safety Report 15891527 (Version 1)
Quarter: 2019Q1

REPORT INFORMATION
  Report Type: Spontaneous
  Country: US (occurrence: US)
  Receive Date: 20190130
  Receipt Date: 20190130
  Transmission Date: 20190417
  Serious: No
  Sender: FDA-Public Use
  Company Number: US-ALLERGAN-1840177US

PATIENT
  Sex: Male

DRUGS (3)
  1. VIIBRYD [Suspect]
     Active Substance: VILAZODONE HYDROCHLORIDE
     Indication: ANXIETY
     Dosage: ACTUAL:10 MG ONCE DAILY FOR 1 WEEK AND THEN 20 MG ONCE DAILY, ORALLY FOR 3 WEEKS.
     Route: 048
     Dates: start: 201807
  2. VIIBRYD [Suspect]
     Active Substance: VILAZODONE HYDROCHLORIDE
     Indication: DEPRESSION
  3. GABAPENTIN. [Concomitant]
     Active Substance: GABAPENTIN
     Dosage: 300 MG, BID

REACTIONS (4)
  - Anosmia [Not Recovered/Not Resolved]
  - Ageusia [Not Recovered/Not Resolved]
  - Drug ineffective [Unknown]
  - Off label use [Unknown]

NARRATIVE: CASE EVENT DATE: 201807
